FAERS Safety Report 8336991-6 (Version None)
Quarter: 2012Q2

REPORT INFORMATION
  Report Type: 
  Country: None (occurrence: None)
  Receive Date: 20120501
  Receipt Date: 20120417
  Transmission Date: 20120825
  Serious: Yes (Other)
  Sender: FDA-Public Use
  Company Number: AUR-APL-2012-01872

PATIENT
  Age: 77 Year
  Sex: Female
  Weight: 51 kg

DRUGS (7)
  1. CANDESARTAN CILEXETIL [Concomitant]
  2. TIOTROPIUM BROMIDE (TIOTROPIUM BROMIDE) [Concomitant]
  3. MOVICOL (NULYTELY /01053601/) [Concomitant]
  4. ZOLPIDEM [Concomitant]
  5. CITALOPRAM HYDROBROMIDE [Suspect]
     Indication: ANXIETY
     Dosage: (10 MG), ORAL
     Route: 048
     Dates: start: 20110929, end: 20111012
  6. CITALOPRAM HYDROBROMIDE [Suspect]
     Indication: DEPRESSION
     Dosage: (10 MG), ORAL
     Route: 048
     Dates: start: 20110929, end: 20111012
  7. CALCICHEW D3 (LEKOVIT CA) [Concomitant]

REACTIONS (4)
  - GRAND MAL CONVULSION [None]
  - SYNCOPE [None]
  - EPILEPSY [None]
  - CONVULSIVE THRESHOLD LOWERED [None]
